FAERS Safety Report 24159718 (Version 1)
Quarter: 2024Q3

REPORT INFORMATION
  Report Type: Spontaneous
  Country: CN (occurrence: CN)
  Receive Date: 20240731
  Receipt Date: 20240731
  Transmission Date: 20241016
  Serious: Yes (Hospitalization)
  Sender: MERCK
  Company Number: CN-MIRATI-MT2024CT06047

PATIENT
  Age: 61 Year
  Sex: Male
  Weight: 60 kg

DRUGS (18)
  1. PEMBROLIZUMAB [Suspect]
     Active Substance: PEMBROLIZUMAB
     Indication: Non-small cell lung cancer
     Dosage: 200 MILLIGRAM, Q3W
     Route: 042
     Dates: start: 20221019, end: 20240123
  2. ADAGRASIB [Suspect]
     Active Substance: ADAGRASIB
     Indication: Non-small cell lung cancer
     Dosage: 400 MILLIGRAM, BID
     Route: 048
     Dates: start: 20221019, end: 20240122
  3. DAPAGLIFLOZIN [Concomitant]
     Active Substance: DAPAGLIFLOZIN
     Indication: Diabetes mellitus
     Route: 048
     Dates: start: 20221213
  4. MUCOPOLYSACCHARIDE POLYSULFATE [Concomitant]
     Indication: Dermatitis atopic
     Dosage: EXTERNAL USE
     Dates: start: 20221211
  5. MUCOPOLYSACCHARIDE POLYSULFATE [Concomitant]
     Indication: Pruritus
  6. MOMETASONE FUROATE [Concomitant]
     Active Substance: MOMETASONE FUROATE
     Indication: Pruritus
     Dosage: EXTERNAL USE
     Dates: start: 20221211
  7. MOMETASONE FUROATE [Concomitant]
     Active Substance: MOMETASONE FUROATE
     Indication: Dermatitis atopic
  8. ASPIRIN [Concomitant]
     Active Substance: ASPIRIN
     Indication: Cerebral infarction
     Route: 048
     Dates: start: 20231009
  9. ATORVASTATIN CALCIUM [Concomitant]
     Active Substance: ATORVASTATIN CALCIUM
     Indication: Cerebral infarction
     Route: 048
     Dates: start: 20231009, end: 20240123
  10. EZETIMIBE [Concomitant]
     Active Substance: EZETIMIBE
     Indication: Cerebral infarction
     Route: 048
     Dates: start: 20240123
  11. CELECOXIB [Concomitant]
     Active Substance: CELECOXIB
     Indication: Headache
     Route: 048
     Dates: start: 20240123
  12. BICYCLOL [Concomitant]
     Active Substance: BICYCLOL
     Indication: Blood alkaline phosphatase increased
     Route: 048
     Dates: start: 20231120
  13. PHOSPHOLIPID [Concomitant]
     Active Substance: PHOSPHOLIPID
     Indication: Blood alkaline phosphatase increased
     Route: 048
     Dates: start: 20231120
  14. PHOSPHOLIPID [Concomitant]
     Active Substance: PHOSPHOLIPID
     Indication: Alanine aminotransferase increased
  15. PHOSPHOLIPID [Concomitant]
     Active Substance: PHOSPHOLIPID
     Indication: Aspartate aminotransferase increased
  16. MAGNESIUM ISOGLYCYRRHIZINATE [Concomitant]
     Active Substance: MAGNESIUM ISOGLYCYRRHIZINATE
     Indication: Blood alkaline phosphatase increased
     Dosage: 100 MG, QD
     Route: 042
     Dates: start: 20240103, end: 20240110
  17. MAGNESIUM ISOGLYCYRRHIZINATE [Concomitant]
     Active Substance: MAGNESIUM ISOGLYCYRRHIZINATE
     Indication: Alanine aminotransferase increased
     Dosage: 100 MG, QD
     Route: 042
     Dates: start: 20240122, end: 20240130
  18. MAGNESIUM ISOGLYCYRRHIZINATE [Concomitant]
     Active Substance: MAGNESIUM ISOGLYCYRRHIZINATE
     Indication: Aspartate aminotransferase increased

REACTIONS (3)
  - Aspartate aminotransferase increased [Recovered/Resolved]
  - Alanine aminotransferase increased [Recovered/Resolved]
  - Blood alkaline phosphatase increased [Recovered/Resolved]

NARRATIVE: CASE EVENT DATE: 20240201
